FAERS Safety Report 10672060 (Version 2)
Quarter: 2015Q1

REPORT INFORMATION
  Report Type: Report from Study
  Country: CA (occurrence: CA)
  Receive Date: 20141223
  Receipt Date: 20150123
  Transmission Date: 20150720
  Serious: Yes (Hospitalization, Other)
  Sender: FDA-Public Use
  Company Number: CA-ABBVIE-14K-028-1323166-00

PATIENT
  Sex: Male

DRUGS (1)
  1. HUMIRA [Suspect]
     Active Substance: ADALIMUMAB
     Indication: CROHN^S DISEASE
     Route: 058
     Dates: start: 20140530, end: 201411

REACTIONS (7)
  - Vomiting [Recovered/Resolved]
  - Early satiety [Recovered/Resolved]
  - Headache [Unknown]
  - Intestinal obstruction [Recovered/Resolved]
  - Treatment failure [Unknown]
  - Intestinal stenosis [Recovered/Resolved]
  - Vision blurred [Recovering/Resolving]

NARRATIVE: CASE EVENT DATE: 2014
